FAERS Safety Report 21959245 (Version 1)
Quarter: 2023Q1

REPORT INFORMATION
  Report Type: Spontaneous
  Country: CN (occurrence: None)
  Receive Date: 20230206
  Receipt Date: 20230206
  Transmission Date: 20230417
  Serious: Yes (Other)
  Sender: FDA-Public Use
  Company Number: CN-ROCHE-3279047

PATIENT
  Age: 38 Year
  Sex: Male
  Weight: 89 kg

DRUGS (4)
  1. ACTEMRA [Suspect]
     Active Substance: TOCILIZUMAB
     Indication: Pneumonia viral
     Dosage: 0.162G FOR LEFT AND RIGHT LOWER LIMBS, RESPECTIVELY
     Route: 058
     Dates: start: 20230110, end: 20230110
  2. ACTEMRA [Suspect]
     Active Substance: TOCILIZUMAB
     Indication: Coronavirus infection
  3. NELFINAVIR [Concomitant]
     Active Substance: NELFINAVIR
     Indication: Pneumonia viral
     Route: 048
     Dates: start: 20230110, end: 20230115
  4. NELFINAVIR [Concomitant]
     Active Substance: NELFINAVIR
     Indication: Coronavirus infection

REACTIONS (3)
  - Leukopenia [Recovering/Resolving]
  - Neutrophil count decreased [Recovering/Resolving]
  - Off label use [Unknown]

NARRATIVE: CASE EVENT DATE: 20230111
